FAERS Safety Report 7341579-X (Version None)
Quarter: 2011Q1

REPORT INFORMATION
  Report Type: 
  Country: None (occurrence: None)
  Receive Date: 20110309
  Receipt Date: 20110303
  Transmission Date: 20110831
  Serious: Yes (Other)
  Sender: FDA-Public Use
  Company Number: CA-AMGEN-CANSP2011010092

PATIENT
  Age: 64 Year
  Sex: Female
  Weight: 43.084 kg

DRUGS (2)
  1. CADUET [Concomitant]
     Dosage: UNK UNK, QD
     Route: 048
  2. PROLIA [Suspect]
     Indication: PRODUCT USED FOR UNKNOWN INDICATION
     Dosage: 60 MG, ONE TIME DOSE
     Route: 058
     Dates: start: 20110211, end: 20110211

REACTIONS (4)
  - APPENDICITIS [None]
  - PYREXIA [None]
  - DIVERTICULITIS [None]
  - INFLUENZA LIKE ILLNESS [None]
